FAERS Safety Report 20397064 (Version 2)
Quarter: 2022Q1

REPORT INFORMATION
  Report Type: Spontaneous
  Country: US (occurrence: US)
  Receive Date: 20220131
  Receipt Date: 20220201
  Transmission Date: 20220423
  Serious: No
  Sender: FDA-Public Use
  Company Number: US-ABBVIE-21K-163-3883483-00

PATIENT
  Age: 39 Year
  Sex: Female
  Weight: 52.210 kg

DRUGS (4)
  1. HUMIRA [Suspect]
     Active Substance: ADALIMUMAB
     Indication: Psoriasis
     Route: 058
     Dates: start: 201911, end: 202012
  2. HUMIRA [Suspect]
     Active Substance: ADALIMUMAB
     Route: 058
     Dates: start: 202103
  3. COVID-19 VACCINE [Concomitant]
     Indication: COVID-19 immunisation
     Dosage: MODERNA?1ST DOSE
     Route: 030
     Dates: start: 202103, end: 202103
  4. COVID-19 VACCINE [Concomitant]
     Dosage: MODERNA?2ND DOSE
     Route: 030
     Dates: start: 202104, end: 202104

REACTIONS (2)
  - Intentional product misuse [Recovered/Resolved]
  - Device issue [Recovered/Resolved]

NARRATIVE: CASE EVENT DATE: 20210421
